FAERS Safety Report 17811519 (Version 3)
Quarter: 2021Q4

REPORT INFORMATION
  Report Type: Spontaneous
  Country: US (occurrence: US)
  Receive Date: 20200521
  Receipt Date: 20211110
  Transmission Date: 20220303
  Serious: Yes (Hospitalization)
  Sender: FDA-Public Use
  Company Number: US-PFIZER INC-2020201432

PATIENT
  Age: 67 Year
  Sex: Male

DRUGS (1)
  1. LYRICA [Suspect]
     Active Substance: PREGABALIN
     Dosage: 3 DF, DAILY (THREE PILLS A DAY) (1 IN AM , 2 PO QHS X 90 DAYS)
     Route: 048

REACTIONS (3)
  - Road traffic accident [Unknown]
  - Intentional product use issue [Unknown]
  - Pain in extremity [Unknown]
